FAERS Safety Report 5593199-5 (Version None)
Quarter: 2008Q1

REPORT INFORMATION
  Report Type: 
  Country: None (occurrence: None)
  Receive Date: 20080116
  Receipt Date: 20080108
  Transmission Date: 20080703
  Serious: Yes (Other)
  Sender: FDA-Public Use
  Company Number: US-BAYER-200713656BWH

PATIENT
  Age: 48 Year
  Sex: Male
  Weight: 85 kg

DRUGS (11)
  1. AVELOX [Suspect]
     Indication: SINUSITIS
     Dosage: TOTAL DAILY DOSE: 400 MG  UNIT DOSE: 400 MG
     Route: 048
     Dates: start: 20071001, end: 20071003
  2. VIDEX EC [Concomitant]
  3. KALETRA [Concomitant]
  4. ZIAGEN [Concomitant]
  5. MS CONTIN [Concomitant]
  6. ACYCLOVIR [Concomitant]
  7. MAXALT [Concomitant]
  8. PREDNISONE TAB [Concomitant]
  9. NEURONTIN [Concomitant]
  10. LEVAQUIN [Concomitant]
     Indication: SINUSITIS
  11. AMOXICILLIN [Concomitant]
     Indication: SINUSITIS

REACTIONS (6)
  - APHASIA [None]
  - EYE DISORDER [None]
  - PHOTOPSIA [None]
  - RETINAL DETACHMENT [None]
  - VISION BLURRED [None]
  - VISUAL DISTURBANCE [None]
